FAERS Safety Report 6293824-X (Version None)
Quarter: 2009Q3

REPORT INFORMATION
  Report Type: 
  Country: None (occurrence: None)
  Receive Date: 20090731
  Receipt Date: 20090731
  Transmission Date: 20100115
  Serious: Yes (Other)
  Sender: FDA-Public Use
  Company Number: None

PATIENT
  Age: 10 Year
  Sex: Female
  Weight: 36.8 kg

DRUGS (2)
  1. GAMUNEX [Suspect]
     Indication: DERMATOMYOSITIS
     Dosage: 13.6 GRAMS, EVERY 3 WEEKS, IV
     Route: 042
     Dates: start: 20090418, end: 20090730
  2. GAMUNEX [Suspect]

REACTIONS (4)
  - BURNING SENSATION [None]
  - CHILLS [None]
  - DYSPNOEA [None]
  - PAIN IN EXTREMITY [None]
